FAERS Safety Report 9888926 (Version 1)
Quarter: 2014Q1

REPORT INFORMATION
  Report Type: Spontaneous
  Country: US (occurrence: None)
  Receive Date: 20140207
  Receipt Date: 20140207
  Transmission Date: 20141002
  Serious: Yes (Death)
  Sender: FDA-Public Use
  Company Number: SYM-2014-16856

PATIENT
  Age: 27 Year
  Sex: Male

DRUGS (6)
  1. CHLORDIAZEPOXIDE [Suspect]
     Route: 048
  2. HYDROXYZINE [Suspect]
     Route: 048
  3. PHENOBARBITAL [Suspect]
  4. CLONAZEPAM [Suspect]
     Route: 048
  5. ATOMOXETINE [Suspect]
     Route: 048
  6. MIRTAZAPINE [Suspect]
     Route: 048

REACTIONS (3)
  - Poisoning [None]
  - Exposure via ingestion [None]
  - Completed suicide [None]
